FAERS Safety Report 8548231 (Version 2)
Quarter: 2014Q3

REPORT INFORMATION
  Report Type: Spontaneous
  Country: CH (occurrence: CH)
  Receive Date: 20120507
  Receipt Date: 20140917
  Transmission Date: 20150326
  Serious: Yes (Other)
  Sender: FDA-Public Use
  Company Number: CH-BAYER-2012-042909

PATIENT
  Age: 56 Year
  Sex: Female
  Weight: 74 kg

DRUGS (8)
  1. DETRUSITOL [Concomitant]
     Active Substance: TOLTERODINE TARTRATE
     Indication: BLADDER DISORDER
     Dosage: DAILY DOSE 4 MG
     Route: 048
  2. SERESTA [Concomitant]
     Active Substance: OXAZEPAM
     Indication: SLEEP DISORDER
     Dosage: 30 MG, QD
     Route: 048
  3. RIBOFLAVIN [Concomitant]
     Active Substance: RIBOFLAVIN
     Indication: VITAMIN SUPPLEMENTATION
     Dosage: DAILY DOSE 400 MG
     Route: 048
  4. FOSICOMP [Concomitant]
     Indication: HYPERTENSION
     Dosage: DAILY DOSE 10 MG
     Route: 048
  5. SURMONTIL [Concomitant]
     Active Substance: TRIMIPRAMINE MALEATE
     Indication: HEADACHE
     Dosage: 200 MG, QD
     Route: 048
  6. FEMICIN [Concomitant]
     Indication: MENOPAUSE
     Dosage: DAILY DOSE 6.5 MG
     Route: 048
  7. APRANAX [Concomitant]
     Active Substance: NAPROXEN
     Indication: INFLUENZA LIKE ILLNESS
     Dosage: 275 MG, TIW
     Route: 048
  8. BETAFERON [Suspect]
     Active Substance: INTERFERON BETA-1B
     Indication: MULTIPLE SCLEROSIS
     Dosage: 4 MIU, TIW
     Route: 058
     Dates: start: 1995

REACTIONS (6)
  - Chills [Unknown]
  - Muscle spasticity [Recovered/Resolved]
  - Influenza like illness [Unknown]
  - Mobility decreased [None]
  - Injection site induration [Unknown]
  - Injection site erythema [Unknown]

NARRATIVE: CASE EVENT DATE: 201012
